FAERS Safety Report 6300946-3 (Version None)
Quarter: 2009Q3

REPORT INFORMATION
  Report Type: 
  Country: None (occurrence: None)
  Receive Date: 20090806
  Receipt Date: 20090806
  Transmission Date: 20100115
  Serious: Yes (Other)
  Sender: FDA-Public Use
  Company Number: None

PATIENT
  Sex: Female
  Weight: 99.7913 kg

DRUGS (4)
  1. ALPRAZOLAM [Suspect]
     Indication: ANXIETY
     Dosage: 1 MG QHS PO
     Route: 048
     Dates: start: 20090608, end: 20090708
  2. CYMBALTA [Concomitant]
  3. SEROQUEL [Concomitant]
  4. TOPAMAX [Concomitant]

REACTIONS (5)
  - ANXIETY [None]
  - HOSTILITY [None]
  - INSOMNIA [None]
  - MOOD SWINGS [None]
  - PRODUCT QUALITY ISSUE [None]
